FAERS Safety Report 5022687-5 (Version None)
Quarter: 2006Q2

REPORT INFORMATION
  Report Type: 
  Country: None (occurrence: None)
  Receive Date: 20060501
  Receipt Date: 20060203
  Transmission Date: 20061013
  Serious: Yes (Hospitalization)
  Sender: FDA-Public Use
  Company Number: 200610716BWH

PATIENT
  Age: 70 Year
  Sex: Female
  Weight: 76.2043 kg

DRUGS (9)
  1. NEXAVAR [Suspect]
     Indication: RENAL CELL CARCINOMA STAGE UNSPECIFIED
     Dosage: 400 MG, BID, ORAL
     Route: 048
     Dates: start: 20060119
  2. COUMADIN [Concomitant]
  3. PENTOXIFYLLINE [Concomitant]
  4. VITAMIN E [Concomitant]
  5. MULTI-VITAMINS [Concomitant]
  6. VITAMIN B6 [Concomitant]
  7. RANITIDINE [Concomitant]
  8. DEXAMETHASONE TAB [Concomitant]
  9. WARFARIN SODIUM [Concomitant]

REACTIONS (12)
  - ANOREXIA [None]
  - BLISTER [None]
  - CHILLS [None]
  - DEHYDRATION [None]
  - HYPERSENSITIVITY [None]
  - PAIN IN EXTREMITY [None]
  - PALMAR-PLANTAR ERYTHRODYSAESTHESIA SYNDROME [None]
  - PERIPHERAL SENSORY NEUROPATHY [None]
  - PLANTAR ERYTHEMA [None]
  - RASH [None]
  - STOMACH DISCOMFORT [None]
  - VOMITING [None]
